FAERS Safety Report 9989355 (Version 1)
Quarter: 2014Q1

REPORT INFORMATION
  Report Type: Spontaneous
  Country: US (occurrence: US)
  Receive Date: 20140310
  Receipt Date: 20140310
  Transmission Date: 20141002
  Serious: Yes (Other)
  Sender: FDA-Public Use
  Company Number: US-ROXANE LABORATORIES, INC.-2014-RO-00355RO

PATIENT
  Sex: Male

DRUGS (3)
  1. CYCLOPHOSPHAMIDE TABLETS USP [Suspect]
     Indication: BRAIN NEOPLASM MALIGNANT
     Route: 065
  2. CARBOPLATIN [Suspect]
     Indication: BRAIN NEOPLASM MALIGNANT
     Route: 065
  3. VINCRISTINE [Suspect]
     Indication: BRAIN NEOPLASM MALIGNANT
     Route: 065

REACTIONS (2)
  - Metastases to liver [Unknown]
  - Metastases to bone [Unknown]
